FAERS Safety Report 10543466 (Version 2)
Quarter: 2014Q4

REPORT INFORMATION
  Report Type: Spontaneous
  Country: SE (occurrence: SE)
  Receive Date: 20141027
  Receipt Date: 20141105
  Transmission Date: 20150529
  Serious: Yes (Other)
  Sender: FDA-Public Use
  Company Number: SE-ACTAVIS-2014-22460

PATIENT
  Sex: Female

DRUGS (1)
  1. DONEPEZIL ACTAVIS [Suspect]
     Active Substance: DONEPEZIL HYDROCHLORIDE
     Indication: SPEECH DISORDER
     Route: 065

REACTIONS (2)
  - Paralysis [Unknown]
  - Aphasia [Unknown]
